FAERS Safety Report 6883137-7 (Version None)
Quarter: 2010Q3

REPORT INFORMATION
  Report Type: 
  Country: None (occurrence: None)
  Receive Date: 20100729
  Receipt Date: 20100719
  Transmission Date: 20110219
  Serious: Yes (Other)
  Sender: FDA-Public Use
  Company Number: US-PFIZER INC-2010090730

PATIENT
  Sex: Female
  Weight: 83.9 kg

DRUGS (4)
  1. ZOLOFT [Suspect]
     Indication: ANXIETY
     Dosage: 50 MG, 2X/DAY
     Route: 048
  2. XANAX [Suspect]
     Indication: ANXIETY
     Dosage: 1 MG, 2X/DAY
     Route: 048
  3. XANAX [Suspect]
     Indication: INSOMNIA
  4. DYAZIDE [Concomitant]
     Dosage: UNK

REACTIONS (1)
  - GLAUCOMA [None]
